FAERS Safety Report 7561819-1 (Version None)
Quarter: 2011Q2

REPORT INFORMATION
  Report Type: 
  Country: None (occurrence: None)
  Receive Date: 20110621
  Receipt Date: 20110608
  Transmission Date: 20111010
  Serious: Yes (Hospitalization, Other)
  Sender: FDA-Public Use
  Company Number: US-CELGENEUS-163-21880-11033148

PATIENT
  Sex: Male

DRUGS (8)
  1. VALACYCLOVIR [Concomitant]
     Route: 065
  2. ASPIRIN [Concomitant]
     Route: 065
  3. GLUCOPHAGE [Concomitant]
     Route: 065
  4. METFORMIN HCL [Concomitant]
     Route: 065
  5. DIOVAN [Concomitant]
     Route: 065
  6. REVLIMID [Suspect]
     Route: 048
     Dates: start: 20100602
  7. LIPITOR [Concomitant]
     Route: 065
  8. MULTI-VITAMINS [Concomitant]
     Route: 065

REACTIONS (2)
  - RENAL NEOPLASM [None]
  - CHEST X-RAY ABNORMAL [None]
